FAERS Safety Report 6245424-5 (Version None)
Quarter: 2009Q2

REPORT INFORMATION
  Report Type: 
  Country: None (occurrence: None)
  Receive Date: 20090625
  Receipt Date: 20090617
  Transmission Date: 20091009
  Serious: Yes (Hospitalization, Other)
  Sender: FDA-Public Use
  Company Number: JP-AVENTIS-200911710JP

PATIENT
  Age: 82 Year
  Sex: Female

DRUGS (6)
  1. LASIX [Suspect]
  2. AMLODIPINE [Suspect]
  3. MEVALOTIN [Suspect]
  4. ALTAT [Suspect]
  5. BLOPRESS [Suspect]
  6. HEPARIN [Concomitant]

REACTIONS (3)
  - MALAISE [None]
  - PNEUMONITIS [None]
  - RESPIRATORY FAILURE [None]
